FAERS Safety Report 22619147 (Version 2)
Quarter: 2024Q3

REPORT INFORMATION
  Report Type: Spontaneous
  Country: ES (occurrence: ES)
  Receive Date: 20230620
  Receipt Date: 20240711
  Transmission Date: 20241017
  Serious: Yes (Hospitalization, Other)
  Sender: PIERRE FABRE MEDICAMENT
  Company Number: None

PATIENT
  Age: 75 Year
  Sex: Female

DRUGS (14)
  1. PROPRANOLOL [Suspect]
     Active Substance: PROPRANOLOL HYDROCHLORIDE
     Indication: Atrial fibrillation
     Dosage: 20 MG; C/8 HOURS
     Route: 048
     Dates: start: 20220825, end: 20220922
  2. AMIODARONE [Suspect]
     Active Substance: AMIODARONE
     Indication: Atrial fibrillation
     Dosage: 200 MG C/24 H
     Route: 048
     Dates: start: 20190508, end: 20220922
  3. GABAPENTIN CINFA [Concomitant]
     Indication: Depression
     Dosage: 300 MG, C/8 HOURS
     Route: 048
     Dates: start: 20190916
  4. ZONEGRAN [Concomitant]
     Active Substance: ZONISAMIDE
     Indication: Essential tremor
     Dosage: 100 MG
     Route: 048
     Dates: start: 20220926
  5. POTASSIUM CITRATE [Concomitant]
     Active Substance: POTASSIUM CITRATE
     Indication: Nephropathy
     Dosage: 1.0 COMP CODE
     Route: 048
     Dates: start: 20211216
  6. PARICALCITOL CINFA [Concomitant]
     Indication: Hyperparathyroidism
     Dosage: 1 UG, W/MON
     Route: 048
     Dates: start: 20211220
  7. PANTOPRAZOLE CINFA [Concomitant]
     Indication: Atrial fibrillation
     Dosage: 20 MG, DE
     Route: 048
     Dates: start: 20220614
  8. LISINOPRIL STADA [Concomitant]
     Indication: Essential hypertension
     Dosage: 5 MG, CE
     Route: 048
     Dates: start: 20211216
  9. TORASEMIDE CINFA [Concomitant]
     Indication: Essential hypertension
     Dosage: 10 MG DE
     Route: 048
     Dates: start: 20210921
  10. SINTROM [Concomitant]
     Active Substance: ACENOCOUMAROL
     Indication: Atrial fibrillation
     Dosage: 4 MG CE
     Route: 048
     Dates: start: 20190507
  11. ALPRAZOLAM CINFA [Concomitant]
     Indication: Essential hypertension
     Dosage: 0.25 MG A-DEVICE
     Route: 048
     Dates: start: 20130219
  12. ESCITALOPRAM OXALATE [Concomitant]
     Active Substance: ESCITALOPRAM OXALATE
     Indication: Anxiety
     Dosage: 10 MG DE
     Route: 048
     Dates: start: 20210916
  13. ALLOPURINOL CINFAMED [Concomitant]
     Indication: Gout
     Dosage: 100 MG CO
     Route: 048
     Dates: start: 20211216
  14. ATORVASTATIN CINFA [Concomitant]
     Indication: Hyperlipidaemia
     Dosage: 10 MG EC
     Route: 048
     Dates: start: 20170829

REACTIONS (1)
  - Bradycardia [Recovered/Resolved]

NARRATIVE: CASE EVENT DATE: 20220922
